FAERS Safety Report 25892746 (Version 1)
Quarter: 2025Q4

REPORT INFORMATION
  Report Type: Spontaneous
  Country: US (occurrence: US)
  Receive Date: 20251007
  Receipt Date: 20251007
  Transmission Date: 20260117
  Serious: Yes (Hospitalization)
  Sender: Alora Pharma
  Company Number: US-ACELLA PHARMACEUTICALS, LLC-2025ALO02533

PATIENT
  Age: 36 Year
  Sex: Male

DRUGS (3)
  1. LACOSAMIDE [Suspect]
     Active Substance: LACOSAMIDE
     Indication: Seizure
     Dosage: UNK
     Route: 065
     Dates: end: 202404
  2. MINOCYCLINE [Concomitant]
     Active Substance: MINOCYCLINE HYDROCHLORIDE
     Indication: Pemphigoid
  3. PHENYTOIN [Concomitant]
     Active Substance: PHENYTOIN
     Indication: Seizure

REACTIONS (2)
  - Pemphigoid [Recovering/Resolving]
  - Sepsis [Recovered/Resolved]
